FAERS Safety Report 21799868 (Version 1)
Quarter: 2022Q4

REPORT INFORMATION
  Report Type: Report from Study
  Country: US (occurrence: US)
  Receive Date: 20221230
  Receipt Date: 20221230
  Transmission Date: 20230113
  Serious: No
  Sender: FDA-Public Use
  Company Number: US-ABBVIE-4253588

PATIENT
  Sex: Female

DRUGS (1)
  1. IMBRUVICA [Suspect]
     Active Substance: IBRUTINIB
     Indication: Chronic lymphocytic leukaemia
     Route: 048
     Dates: start: 202210

REACTIONS (7)
  - Blood calcium increased [Unknown]
  - White blood cell count abnormal [Unknown]
  - Pyrexia [Unknown]
  - Fall [Unknown]
  - Chills [Unknown]
  - Gait disturbance [Unknown]
  - Anger [Unknown]
